FAERS Safety Report 5733489-6 (Version None)
Quarter: 2008Q2

REPORT INFORMATION
  Report Type: 
  Country: None (occurrence: None)
  Receive Date: 20080509
  Receipt Date: 20080502
  Transmission Date: 20081010
  Serious: Yes (Life-Threatening, Hospitalization)
  Sender: FDA-Public Use
  Company Number: GB-MERCK-0803GBR00029

PATIENT
  Age: 88 Year
  Sex: Female
  Weight: 64 kg

DRUGS (7)
  1. ZOCOR [Suspect]
     Indication: BLOOD CHOLESTEROL INCREASED
     Route: 048
     Dates: start: 20050101, end: 20050101
  2. ZOCOR [Suspect]
     Indication: ANGINA PECTORIS
     Route: 048
     Dates: start: 20050101, end: 20050101
  3. ISOSORBIDE MONONITRATE [Concomitant]
     Indication: ANGINA PECTORIS
     Route: 065
  4. ASPIRIN [Concomitant]
     Indication: ANGINA PECTORIS
     Route: 065
  5. RAMIPRIL [Concomitant]
     Indication: HYPERTENSION
     Route: 065
  6. NITROGLYCERIN [Concomitant]
     Indication: ANGINA PECTORIS
     Route: 065
  7. FUROSEMIDE [Concomitant]
     Indication: HYPERTENSION
     Route: 065

REACTIONS (1)
  - ACUTE MYOCARDIAL INFARCTION [None]
